FAERS Safety Report 4974645-4 (Version None)
Quarter: 2006Q1

REPORT INFORMATION
  Report Type: 
  Country: None (occurrence: None)
  Receive Date: 20060227
  Receipt Date: 20051222
  Transmission Date: 20060701
  Serious: No
  Sender: FDA-Public Use
  Company Number: PHEH2005US13782

PATIENT
  Age: 85 Year
  Sex: Female

DRUGS (7)
  1. ENABLEX [Suspect]
     Indication: URGE INCONTINENCE
     Dosage: 15 MG, QD
     Dates: start: 20051215
  2. TOPROL-XL [Concomitant]
  3. LIPITOR [Concomitant]
  4. FUROSEMIDE [Concomitant]
  5. ASPIRIN [Concomitant]
  6. NEXIUM [Concomitant]
  7. NORVASC [Concomitant]

REACTIONS (1)
  - DRY MOUTH [None]
